FAERS Safety Report 21554582 (Version 8)
Quarter: 2024Q1

REPORT INFORMATION
  Report Type: Spontaneous
  Country: US (occurrence: US)
  Receive Date: 20221104
  Receipt Date: 20240126
  Transmission Date: 20240409
  Serious: No
  Sender: FDA-Public Use
  Company Number: US-PFIZER INC-202200611418

PATIENT
  Age: 66 Year
  Sex: Female

DRUGS (2)
  1. IBRANCE [Suspect]
     Active Substance: PALBOCICLIB
     Indication: Breast cancer female
     Dosage: 100 MG, CYCLIC (1 TABLET BY MOUTH DAILY X21 DAYS, FOLLOWED BY 7 DAYS OFF)
     Route: 048
  2. IBRANCE [Suspect]
     Active Substance: PALBOCICLIB
     Indication: Nodule

REACTIONS (7)
  - Neoplasm progression [Unknown]
  - Malaise [Unknown]
  - Tendonitis [Unknown]
  - Hypoacusis [Not Recovered/Not Resolved]
  - Axillary pain [Unknown]
  - Peripheral swelling [Unknown]
  - Product prescribing error [Unknown]
